FAERS Safety Report 13292342 (Version 1)
Quarter: 2017Q1

REPORT INFORMATION
  Report Type: Spontaneous
  Country: GR (occurrence: GR)
  Receive Date: 20170303
  Receipt Date: 20170303
  Transmission Date: 20170428
  Serious: Yes (Other)
  Sender: FDA-Public Use
  Company Number: GR-CELLTRION HEALTHCARE HUNGARY KFT-2017GR002485

PATIENT

DRUGS (2)
  1. INFLIXIMAB HOSPIRA [Suspect]
     Active Substance: INFLIXIMAB
     Indication: CROHN^S DISEASE
  2. ECHINACEA                          /01323501/ [Suspect]
     Active Substance: ECHINACEA PURPUREA
     Indication: PRODUCT USED FOR UNKNOWN INDICATION

REACTIONS (3)
  - Crohn^s disease [Recovered/Resolved]
  - Faecal calprotectin increased [Recovered/Resolved]
  - Condition aggravated [Recovered/Resolved]
